FAERS Safety Report 8823685 (Version 2)
Quarter: 2014Q2

REPORT INFORMATION
  Report Type: Spontaneous
  Country: AU (occurrence: AU)
  Receive Date: 20121003
  Receipt Date: 20131017
  Transmission Date: 20141212
  Serious: Yes (Hospitalization, Other)
  Sender: FDA-Public Use
  Company Number: AU-PFIZER INC-2012240446

PATIENT
  Age: 47 Year
  Sex: Male

DRUGS (3)
  1. PHENYTOIN [Suspect]
     Indication: CONVULSION
     Dosage: 300 MG NOCTE
  2. PHENYTOIN [Suspect]
     Dosage: 500 MG OVER 2 WEEKS
  3. BENZYLPENICILLIN [Concomitant]
     Dosage: UNK

REACTIONS (2)
  - Drug reaction with eosinophilia and systemic symptoms [Recovered/Resolved]
  - Rhabdomyolysis [Unknown]
